FAERS Safety Report 12887344 (Version 1)
Quarter: 2016Q4

REPORT INFORMATION
  Report Type: Report from Study
  Country: US (occurrence: US)
  Receive Date: 20161026
  Receipt Date: 20161026
  Transmission Date: 20170207
  Serious: Yes (Death, Other)
  Sender: FDA-Public Use
  Company Number: US-JAZZ-2016-US-014256

PATIENT
  Age: 18 Year
  Sex: Male
  Weight: 68.5 kg

DRUGS (15)
  1. FOSCARNET [Concomitant]
     Active Substance: FOSCARNET
     Indication: INFECTION
     Dosage: 6.260 MG, UNK
     Route: 042
     Dates: start: 20150718
  2. HEPARIN SODIUM. [Concomitant]
     Active Substance: HEPARIN SODIUM
     Dosage: 30 U, PRN
     Dates: start: 20150721
  3. KEPPRA [Concomitant]
     Active Substance: LEVETIRACETAM
     Indication: SEIZURE
     Dosage: 250 MG, BID
     Route: 042
     Dates: start: 20160717
  4. MICAFUNGIN [Concomitant]
     Active Substance: MICAFUNGIN
     Indication: INFECTION
     Dosage: 75 MG, UNK
     Route: 042
     Dates: start: 20150726
  5. ISRADIPINE. [Concomitant]
     Active Substance: ISRADIPINE
     Dosage: 2.5 MG, PRN
     Route: 042
     Dates: start: 20150709
  6. SODIUM BICARBONATE. [Concomitant]
     Active Substance: SODIUM BICARBONATE
     Indication: ELECTROLYTE IMBALANCE
     Dosage: 60 ML, Q4H
     Route: 042
     Dates: start: 20150719
  7. DOCUSATE CALCIUM. [Concomitant]
     Active Substance: DOCUSATE CALCIUM
     Indication: CONSTIPATION
     Dosage: 100 MG, UNK
     Route: 048
  8. CALCIUM CHLORIDE. [Concomitant]
     Active Substance: CALCIUM CHLORIDE
     Indication: HYPONATRAEMIA
     Dosage: 8 MG/ML, UNK
     Route: 042
     Dates: start: 20150719
  9. PROMETHAZINE [Concomitant]
     Active Substance: PROMETHAZINE\PROMETHAZINE HYDROCHLORIDE
     Indication: NAUSEA
     Dosage: 25 MG, TID
     Route: 042
     Dates: start: 20150618
  10. VANCOMYCIN [Concomitant]
     Active Substance: VANCOMYCIN
     Indication: INFECTION
     Dosage: 750 MG, UNK
     Route: 042
  11. INSULIN [Concomitant]
     Active Substance: INSULIN NOS
     Indication: HYPERGLYCAEMIA
     Dosage: CONTINUOUS INFUSION
     Route: 042
     Dates: start: 20150721
  12. CEFEPIME HYDROCHLORIDE. [Concomitant]
     Active Substance: CEFEPIME HYDROCHLORIDE
     Indication: INFECTION
     Dosage: 200 MG, BID
     Route: 042
     Dates: start: 20150629
  13. URSODIOL. [Concomitant]
     Active Substance: URSODIOL
     Indication: VENOOCCLUSIVE DISEASE
     Dosage: 300 MG, BID
     Route: 042
     Dates: start: 20150618
  14. DEFIBROTIDE (INV) [Suspect]
     Active Substance: DEFIBROTIDE SODIUM
     Indication: VENOOCCLUSIVE DISEASE
     Dosage: 1560 MG, QD
     Route: 042
     Dates: start: 20150717, end: 20150731
  15. ZOFRAN [Concomitant]
     Active Substance: ONDANSETRON HYDROCHLORIDE
     Indication: NAUSEA
     Dosage: 8 MG, Q6H
     Route: 042
     Dates: start: 20150720

REACTIONS (1)
  - Pulmonary alveolar haemorrhage [Not Recovered/Not Resolved]

NARRATIVE: CASE EVENT DATE: 20150730
